FAERS Safety Report 9109707 (Version 1)
Quarter: 2013Q1

REPORT INFORMATION
  Report Type: Report from Study
  Country: AR (occurrence: AR)
  Receive Date: 20130222
  Receipt Date: 20130222
  Transmission Date: 20140127
  Serious: Yes (Hospitalization)
  Sender: FDA-Public Use
  Company Number: AR-BRISTOL-MYERS SQUIBB COMPANY-15799224

PATIENT
  Age: 81 Year
  Sex: Male

DRUGS (3)
  1. IPILIMUMAB [Suspect]
     Indication: PROSTATE CANCER
     Dosage: 1DF-195.6(UNITS NOT SP)
     Route: 042
     Dates: start: 20110517, end: 20110517
  2. OMEPRAZOLE [Concomitant]
     Dosage: RESTARTED ON 07-JUN-2011
     Dates: start: 20110531
  3. TOBRADEX [Concomitant]
     Dates: start: 20110531

REACTIONS (4)
  - Vasculitis [Recovered/Resolved]
  - Dehydration [Recovered/Resolved]
  - Dyspnoea [Recovered/Resolved]
  - Bronchospasm [Recovered/Resolved]
